FAERS Safety Report 22638003 (Version 1)
Quarter: 2023Q2

REPORT INFORMATION
  Report Type: Spontaneous
  Country: US (occurrence: US)
  Receive Date: 20230626
  Receipt Date: 20230626
  Transmission Date: 20230721
  Serious: Yes (Other)
  Sender: FDA-Public Use
  Company Number: US-drreddys-LIT/USA/23/0167783

PATIENT
  Age: 68 Year
  Sex: Female

DRUGS (4)
  1. PRASUGREL [Suspect]
     Active Substance: PRASUGREL
     Indication: Thrombosis prophylaxis
  2. ASPIRIN [Suspect]
     Active Substance: ASPIRIN
     Indication: Thrombosis prophylaxis
     Dosage: LOADING DOSE
  3. ASPIRIN [Suspect]
     Active Substance: ASPIRIN
     Dosage: MAINTENANCE DOSE
  4. CANGRELOR [Suspect]
     Active Substance: CANGRELOR
     Indication: Thrombosis prophylaxis
     Dosage: IV BOLUS OF CANGRELOR 2 MICROG/KG/MINUTE

REACTIONS (2)
  - Vascular stent thrombosis [Unknown]
  - Drug ineffective [Unknown]
